FAERS Safety Report 21183100 (Version 6)
Quarter: 2022Q4

REPORT INFORMATION
  Report Type: Report from Study
  Country: NL (occurrence: NL)
  Receive Date: 20220808
  Receipt Date: 20221027
  Transmission Date: 20230113
  Serious: Yes (Hospitalization, Other)
  Sender: FDA-Public Use
  Company Number: NL-ABBVIE-22K-114-4494443-00

PATIENT
  Sex: Female

DRUGS (6)
  1. CARBIDOPA\LEVODOPA [Suspect]
     Active Substance: CARBIDOPA\LEVODOPA
     Indication: Parkinson^s disease
     Route: 050
     Dates: start: 20201102
  2. CARBIDOPA\LEVODOPA [Suspect]
     Active Substance: CARBIDOPA\LEVODOPA
     Route: 050
  3. CARBIDOPA\LEVODOPA [Suspect]
     Active Substance: CARBIDOPA\LEVODOPA
     Dosage: MD 10.0 ML; CD 2.0 ML/H; ED 1.0 ML
     Route: 050
  4. PRAMIPEXOLE [Concomitant]
     Active Substance: PRAMIPEXOLE
     Indication: Parkinson^s disease
     Dosage: 2.25 MILLIGRAM
     Route: 048
     Dates: start: 20201026
  5. PRAMIPEXOLE [Concomitant]
     Active Substance: PRAMIPEXOLE
     Indication: Parkinson^s disease
     Dosage: 2.25 MILLIGRAM
     Route: 048
     Dates: start: 20201026
  6. PRAMIPEXOLE [Concomitant]
     Active Substance: PRAMIPEXOLE
     Indication: Parkinson^s disease
     Dosage: 2.25 MILLIGRAM
     Route: 048
     Dates: start: 20201026

REACTIONS (15)
  - Palpitations [Recovering/Resolving]
  - On and off phenomenon [Not Recovered/Not Resolved]
  - Pleural effusion [Not Recovered/Not Resolved]
  - Neck pain [Not Recovered/Not Resolved]
  - Pain [Not Recovered/Not Resolved]
  - Asthenia [Not Recovered/Not Resolved]
  - Tremor [Not Recovered/Not Resolved]
  - Weight fluctuation [Not Recovered/Not Resolved]
  - Dysphagia [Not Recovered/Not Resolved]
  - Bowel movement irregularity [Not Recovered/Not Resolved]
  - Stoma site discharge [Not Recovered/Not Resolved]
  - Parkinson^s disease [Recovering/Resolving]
  - Stoma site erythema [Unknown]
  - Coronary arterial stent insertion [Not Recovered/Not Resolved]
  - Complication associated with device [Not Recovered/Not Resolved]
